FAERS Safety Report 13232328 (Version 1)
Quarter: 2017Q1

REPORT INFORMATION
  Report Type: Spontaneous
  Country: BE (occurrence: BE)
  Receive Date: 20170214
  Receipt Date: 20170214
  Transmission Date: 20170428
  Serious: Yes (Death, Other)
  Sender: FDA-Public Use
  Company Number: PHHY2017BE018733

PATIENT
  Age: 60 Year
  Sex: Female

DRUGS (3)
  1. DOXORUBICIN HYDROCHLORIDE SANDOZ [Suspect]
     Active Substance: DOXORUBICIN HYDROCHLORIDE
     Indication: METASTASES TO LUNG
     Route: 065
  2. ETOPOSIDE SANDOZ [Suspect]
     Active Substance: ETOPOSIDE
     Indication: METASTATIC NEOPLASM
     Dosage: 120 MG/M2, QW3
     Route: 065
  3. DOXORUBICIN HYDROCHLORIDE SANDOZ [Suspect]
     Active Substance: DOXORUBICIN HYDROCHLORIDE
     Indication: PHYLLODES TUMOUR

REACTIONS (5)
  - Metastases to central nervous system [Fatal]
  - Drug effect incomplete [Unknown]
  - Disease progression [Not Recovered/Not Resolved]
  - Treatment failure [Unknown]
  - Hemiplegia [Fatal]
